FAERS Safety Report 6554913-5 (Version None)
Quarter: 2010Q1

REPORT INFORMATION
  Report Type: 
  Country: None (occurrence: None)
  Receive Date: 20100126
  Receipt Date: 20100120
  Transmission Date: 20100710
  Serious: Yes (Life-Threatening, Other)
  Sender: FDA-Public Use
  Company Number: 2010TJ0020

PATIENT
  Sex: Female

DRUGS (1)
  1. TWINJECT 0.3 [Suspect]
     Dosage: 0.3 MG, AS NEEDED
     Dates: start: 20100115, end: 20100115

REACTIONS (2)
  - DEVICE MALFUNCTION [None]
  - DRUG DOSE OMISSION [None]
